FAERS Safety Report 4985879-7 (Version None)
Quarter: 2006Q2

REPORT INFORMATION
  Report Type: 
  Country: None (occurrence: None)
  Receive Date: 20060421
  Receipt Date: 20060408
  Transmission Date: 20061013
  Serious: Yes (Hospitalization)
  Sender: FDA-Public Use
  Company Number: HQWYE418021MAR06

PATIENT
  Age: 56 Year
  Sex: Male

DRUGS (7)
  1. VENLAFAXINE XR [Suspect]
     Indication: DEPRESSION
     Dosage: 75 MG 1X PER 1 DAY
     Route: 048
     Dates: start: 20050428, end: 20060315
  2. BROTIZOLAM [Concomitant]
  3. METHYCOBAL (MECOBALAMIN) [Concomitant]
  4. AMARYL [Concomitant]
  5. ACTOS [Concomitant]
  6. METFORMIN [Concomitant]
  7. PRAVASTATIN SODIUM [Concomitant]

REACTIONS (9)
  - ANXIETY [None]
  - CONDITION AGGRAVATED [None]
  - DECREASED APPETITE [None]
  - DIABETES MELLITUS [None]
  - FEAR [None]
  - HYPOCHONDRIASIS [None]
  - PANIC REACTION [None]
  - SOCIAL AVOIDANT BEHAVIOUR [None]
  - VOMITING [None]
